FAERS Safety Report 4758160-9 (Version None)
Quarter: 2005Q3

REPORT INFORMATION
  Report Type: 
  Country: None (occurrence: None)
  Receive Date: 20050831
  Receipt Date: 20050315
  Transmission Date: 20060218
  Serious: Yes (Hospitalization)
  Sender: FDA-Public Use
  Company Number: US-MERCK-0503USA03249

PATIENT
  Age: 62 Year
  Sex: Male
  Weight: 86 kg

DRUGS (5)
  1. VIOXX [Suspect]
     Indication: OSTEOARTHRITIS
     Route: 048
     Dates: start: 20010101, end: 20040101
  2. ASPIRIN [Concomitant]
     Indication: PROPHYLAXIS
     Route: 048
     Dates: start: 19850101
  3. GLYBURIDE [Concomitant]
     Indication: DIABETES MELLITUS
     Route: 048
  4. GLUCOPHAGE [Concomitant]
     Indication: DIABETES MELLITUS
     Route: 048
  5. SIMVASTATIN [Concomitant]
     Route: 048

REACTIONS (24)
  - ABSCESS LIMB [None]
  - ANGINA PECTORIS [None]
  - ANGIOPATHY [None]
  - AORTIC VALVE STENOSIS [None]
  - ATRIAL FIBRILLATION [None]
  - BRADYCARDIA [None]
  - CARDIAC MURMUR [None]
  - CHEST DISCOMFORT [None]
  - CHEST PAIN [None]
  - CORONARY ARTERY DISEASE [None]
  - CORONARY ARTERY OCCLUSION [None]
  - CORONARY ARTERY STENOSIS [None]
  - DILATATION VENTRICULAR [None]
  - DYSPNOEA EXERTIONAL [None]
  - DYSPNOEA PAROXYSMAL NOCTURNAL [None]
  - FINGER AMPUTATION [None]
  - GRAFT THROMBOSIS [None]
  - HYPERCHOLESTEROLAEMIA [None]
  - LOCALISED INFECTION [None]
  - MYOCARDIAL INFARCTION [None]
  - MYOCARDIAL ISCHAEMIA [None]
  - OEDEMA PERIPHERAL [None]
  - PALPITATIONS [None]
  - VENTRICULAR HYPERTROPHY [None]
